FAERS Safety Report 9493300 (Version 2)
Quarter: 2013Q3

REPORT INFORMATION
  Report Type: Report from Study
  Country: IT (occurrence: IT)
  Receive Date: 20130902
  Receipt Date: 20130902
  Transmission Date: 20140515
  Serious: Yes (Hospitalization)
  Sender: FDA-Public Use
  Company Number: PHHO2011IT08334

PATIENT
  Age: 55 Year
  Sex: Male
  Weight: 120 kg

DRUGS (7)
  1. ALISKIREN [Suspect]
     Indication: CARDIOVASCULAR DISORDER
     Route: 048
     Dates: start: 20080717, end: 20110509
  2. AMLODIPINE [Concomitant]
  3. CARVEDILOL [Concomitant]
  4. LOSARTAN POTASSIUM W/HYDROCHLOROTHIAZIDE [Concomitant]
  5. REPAGLINIDE [Concomitant]
  6. SIMVASTATIN [Concomitant]
  7. TIROXINA [Concomitant]

REACTIONS (4)
  - Respiratory failure [Recovered/Resolved with Sequelae]
  - Metabolic acidosis [Recovered/Resolved with Sequelae]
  - Renal impairment [Recovered/Resolved with Sequelae]
  - Concomitant disease progression [Recovered/Resolved with Sequelae]
